FAERS Safety Report 5548291-8 (Version None)
Quarter: 2007Q4

REPORT INFORMATION
  Report Type: 
  Country: None (occurrence: None)
  Receive Date: 20071211
  Receipt Date: 20070402
  Transmission Date: 20080405
  Serious: No
  Sender: FDA-Public Use
  Company Number: US-AMGEN-KDL214855

PATIENT
  Sex: Male

DRUGS (2)
  1. ENBREL [Suspect]
     Indication: PSORIATIC ARTHROPATHY
     Route: 058
     Dates: start: 20060927
  2. ENBREL [Suspect]
     Indication: PSORIASIS

REACTIONS (10)
  - ARTHRALGIA [None]
  - COUGH [None]
  - DYSGEUSIA [None]
  - LOWER RESPIRATORY TRACT INFECTION [None]
  - NASOPHARYNGITIS [None]
  - PAIN IN EXTREMITY [None]
  - PSORIASIS [None]
  - SINUS CONGESTION [None]
  - SINUSITIS [None]
  - SKIN ODOUR ABNORMAL [None]
